FAERS Safety Report 6895131-0 (Version None)
Quarter: 2010Q3

REPORT INFORMATION
  Report Type: 
  Country: None (occurrence: None)
  Receive Date: 20100802
  Receipt Date: 20100722
  Transmission Date: 20110219
  Serious: Yes (Hospitalization)
  Sender: FDA-Public Use
  Company Number: CH-JNJFOC-20100705920

PATIENT
  Age: 82 Year
  Sex: Male

DRUGS (20)
  1. INVEGA [Suspect]
     Indication: PSYCHOTIC DISORDER
     Route: 048
  2. INVEGA [Suspect]
     Route: 048
  3. INVEGA [Suspect]
     Indication: DEPRESSION
     Route: 048
  4. INVEGA [Suspect]
     Route: 048
  5. DILTIAZEM [Suspect]
     Indication: ATRIAL FIBRILLATION
     Route: 048
  6. DILTIAZEM [Suspect]
     Route: 048
  7. DILTIAZEM [Suspect]
     Route: 048
  8. DILTIAZEM [Suspect]
     Route: 048
  9. HALDOL [Concomitant]
     Indication: PRODUCT USED FOR UNKNOWN INDICATION
     Route: 048
  10. HALDOL [Concomitant]
     Route: 048
  11. HALDOL [Concomitant]
     Route: 048
  12. HALDOL [Concomitant]
     Route: 048
  13. REMERON [Concomitant]
     Indication: PRODUCT USED FOR UNKNOWN INDICATION
  14. REMERON [Concomitant]
  15. SINTROM [Concomitant]
     Indication: PRODUCT USED FOR UNKNOWN INDICATION
  16. LISINOPRIL [Concomitant]
     Indication: PRODUCT USED FOR UNKNOWN INDICATION
  17. RIMACTANE [Concomitant]
     Indication: PRODUCT USED FOR UNKNOWN INDICATION
  18. SUPRACYCLIN [Concomitant]
     Indication: PRODUCT USED FOR UNKNOWN INDICATION
  19. NEXIUM [Concomitant]
     Indication: PRODUCT USED FOR UNKNOWN INDICATION
  20. DISTRANEURINE [Concomitant]
     Indication: PRODUCT USED FOR UNKNOWN INDICATION

REACTIONS (3)
  - ACUTE PULMONARY OEDEMA [None]
  - CARDIAC FAILURE [None]
  - TACHYARRHYTHMIA [None]
